FAERS Safety Report 19389904 (Version 6)
Quarter: 2021Q4

REPORT INFORMATION
  Report Type: Spontaneous
  Country: DE (occurrence: DE)
  Receive Date: 20210608
  Receipt Date: 20211102
  Transmission Date: 20220303
  Serious: Yes (Other)
  Sender: FDA-Public Use
  Company Number: None

PATIENT
  Age: 8 Year
  Sex: Male

DRUGS (4)
  1. PROHANCE [Suspect]
     Active Substance: GADOTERIDOL
     Indication: Magnetic resonance imaging head
     Dosage: 1X 6 ML, SINGLE
     Route: 042
     Dates: start: 20160426, end: 20160426
  2. VITAMIN D NOS [Concomitant]
     Active Substance: VITAMIN D NOS
     Indication: Vitamin D deficiency
     Dosage: 2000 IU, QD
     Route: 065
     Dates: start: 202102
  3. DIETARY SUPPLEMENT\HERBALS\MILK THISTLE [Concomitant]
     Active Substance: DIETARY SUPPLEMENT\HERBALS\MILK THISTLE
     Dosage: UNK, QD
     Route: 065
     Dates: start: 20210520
  4. POLYSPECTRAN [BACITRACIN;NEOMYCIN SULFATE;POLYMYXIN B SULFATE] [Concomitant]
     Indication: Conjunctivitis
     Dosage: UNK
     Route: 047
     Dates: start: 20160425

REACTIONS (13)
  - Contrast media deposition [Unknown]
  - Depressed level of consciousness [Recovering/Resolving]
  - Myalgia [Recovered/Resolved]
  - Headache [Not Recovered/Not Resolved]
  - Night sweats [Not Recovered/Not Resolved]
  - Hepatic steatosis [Not Recovered/Not Resolved]
  - Insulin resistance [Not Recovered/Not Resolved]
  - Glucose tolerance impaired [Unknown]
  - Allergy to animal [Not Recovered/Not Resolved]
  - Seasonal allergy [Not Recovered/Not Resolved]
  - Palpitations [Unknown]
  - Hypertriglyceridaemia [Unknown]
  - Obesity [Unknown]

NARRATIVE: CASE EVENT DATE: 20160401
